FAERS Safety Report 26054790 (Version 3)
Quarter: 2025Q4

REPORT INFORMATION
  Report Type: Report from Study
  Country: JP (occurrence: JP)
  Receive Date: 20251117
  Receipt Date: 20251226
  Transmission Date: 20260118
  Serious: Yes (Hospitalization)
  Sender: ABBVIE
  Company Number: JP-ABBVIE-6542339

PATIENT
  Age: 65 Year
  Sex: Male

DRUGS (1)
  1. VYALEV [Suspect]
     Active Substance: FOSCARBIDOPA\FOSLEVODOPA
     Indication: Parkinson^s disease
     Route: 058
     Dates: start: 20241114

REACTIONS (3)
  - Hypoaesthesia [Not Recovered/Not Resolved]
  - Vitamin B6 deficiency [Unknown]
  - Weight decreased [Unknown]

NARRATIVE: CASE EVENT DATE: 20250101
